FAERS Safety Report 8167165-X (Version None)
Quarter: 2012Q1

REPORT INFORMATION
  Report Type: 
  Country: None (occurrence: None)
  Receive Date: 20120227
  Receipt Date: 20120213
  Transmission Date: 20120608
  Serious: Yes (Hospitalization)
  Sender: FDA-Public Use
  Company Number: US-SANOFI-AVENTIS-2012SA009658

PATIENT
  Age: 57 Year
  Sex: Female
  Weight: 78.7 kg

DRUGS (12)
  1. FLUOROURACIL [Suspect]
     Indication: BREAST CANCER
     Route: 042
     Dates: start: 20090313, end: 20090512
  2. CYCLOPHOSPHAMIDE [Suspect]
     Indication: BREAST CANCER
     Route: 042
     Dates: start: 20090313, end: 20090512
  3. MEXAFORM [Concomitant]
     Dates: start: 19950101
  4. ESOMEPRAZOLE MAGNESIUM [Concomitant]
     Dates: start: 20060101
  5. EPIRUBICIN [Suspect]
     Indication: BREAST CANCER
     Route: 042
     Dates: start: 20090313, end: 20090512
  6. IBUPROFEN [Concomitant]
     Dates: start: 20090501
  7. DEXAMETHASONE [Concomitant]
     Dates: start: 20081116
  8. BEVACIZUMAB [Suspect]
     Indication: BREAST CANCER
     Route: 042
     Dates: start: 20090313
  9. DOCETAXEL [Suspect]
     Indication: BREAST CANCER
     Route: 042
     Dates: start: 20090611, end: 20090630
  10. EPIRUBICIN [Suspect]
     Route: 042
     Dates: start: 20090313, end: 20090512
  11. MERSYNDOL [Concomitant]
     Dates: start: 19950101
  12. DEXAMETHASONE [Concomitant]
     Dates: start: 20090616, end: 20090617

REACTIONS (2)
  - GASTROINTESTINAL INFLAMMATION [None]
  - NEUTROPENIA [None]
